FAERS Safety Report 15129818 (Version 1)
Quarter: 2018Q3

REPORT INFORMATION
  Report Type: Report from Study
  Country: IL (occurrence: IL)
  Receive Date: 20180711
  Receipt Date: 20180711
  Transmission Date: 20181010
  Serious: No
  Sender: FDA-Public Use
  Company Number: IL-ROCHE-2152137

PATIENT
  Age: 69 Year
  Sex: Female

DRUGS (1)
  1. OCREVUS [Suspect]
     Active Substance: OCRELIZUMAB
     Indication: MULTIPLE SCLEROSIS
     Route: 065
     Dates: start: 20180327

REACTIONS (1)
  - Tooth infection [Recovered/Resolved]

NARRATIVE: CASE EVENT DATE: 20180630
